FAERS Safety Report 5783019-8 (Version None)
Quarter: 2008Q2

REPORT INFORMATION
  Report Type: 
  Country: None (occurrence: None)
  Receive Date: 20080619
  Receipt Date: 20080619
  Transmission Date: 20081010
  Serious: Yes (Other)
  Sender: FDA-Public Use
  Company Number: None

PATIENT
  Sex: Female
  Weight: 99.5 kg

DRUGS (1)
  1. LAMICTAL [Suspect]
     Indication: AFFECTIVE DISORDER
     Dosage: 25 MG NIGHTLY PO
     Route: 048
     Dates: start: 20080523, end: 20080529

REACTIONS (3)
  - ERYTHEMA [None]
  - LYMPH NODE PAIN [None]
  - LYMPHADENOPATHY [None]
